FAERS Safety Report 20937367 (Version 1)
Quarter: 2022Q2

REPORT INFORMATION
  Report Type: Spontaneous
  Country: CN (occurrence: CN)
  Receive Date: 20220609
  Receipt Date: 20220609
  Transmission Date: 20220721
  Serious: Yes (Life-Threatening, Hospitalization, Other)
  Sender: FDA-Public Use
  Company Number: CN-LUPIN PHARMACEUTICALS INC.-2022-08286

PATIENT
  Age: 66 Year
  Sex: Female

DRUGS (13)
  1. MOXIFLOXACIN [Suspect]
     Active Substance: MOXIFLOXACIN
     Indication: COVID-19 pneumonia
     Dosage: UNK
     Route: 065
  2. METHYLPREDNISOLONE [Suspect]
     Active Substance: METHYLPREDNISOLONE
     Indication: COVID-19 pneumonia
     Dosage: 40 MG, QD
     Route: 065
  3. VORICONAZOLE [Suspect]
     Active Substance: VORICONAZOLE
     Indication: Bacterial infection
     Dosage: ADMINISTERED ONCE
     Route: 065
  4. LINEZOLID [Suspect]
     Active Substance: LINEZOLID
     Indication: Bacterial infection
     Dosage: UNK
     Route: 065
  5. UMIFENOVIR [Suspect]
     Active Substance: UMIFENOVIR
     Indication: COVID-19 pneumonia
     Dosage: UNK
     Route: 065
  6. HUMAN IMMUNOGLOBULIN G [Suspect]
     Active Substance: HUMAN IMMUNOGLOBULIN G
     Indication: COVID-19 pneumonia
     Dosage: UNK UNK, QD (10-20 GRAM)
     Route: 065
  7. PIPERACILLIN SODIUM\TAZOBACTAM SODIUM [Suspect]
     Active Substance: PIPERACILLIN SODIUM\TAZOBACTAM SODIUM
     Indication: COVID-19 pneumonia
     Dosage: UNK
     Route: 065
  8. MEROPENEM [Suspect]
     Active Substance: MEROPENEM
     Indication: COVID-19 pneumonia
     Dosage: UNK
     Route: 065
  9. COVID-19 CONVALESCENT PLASMA [Suspect]
     Active Substance: COVID-19 CONVALESCENT PLASMA
     Indication: COVID-19 pneumonia
     Dosage: UNK
     Route: 065
  10. TIGECYCLINE [Suspect]
     Active Substance: TIGECYCLINE
     Indication: Bacterial infection
     Dosage: UNK ADMINISTERED ONCE
     Route: 065
  11. POLYMYXIN B [Suspect]
     Active Substance: POLYMYXIN B
     Indication: Bacterial infection
     Dosage: ADMINISTERED ONCE
     Route: 065
  12. THYMALFASIN [Suspect]
     Active Substance: THYMALFASIN
     Indication: Bacterial infection
     Dosage: UNK
     Route: 065
  13. DAPTOMYCIN [Suspect]
     Active Substance: DAPTOMYCIN
     Indication: Bacterial infection
     Dosage: UNK
     Route: 065

REACTIONS (3)
  - Drug ineffective for unapproved indication [Unknown]
  - Drug ineffective [Unknown]
  - Off label use [Unknown]
